FAERS Safety Report 8596210-2 (Version None)
Quarter: 2012Q3

REPORT INFORMATION
  Report Type: 
  Country: None (occurrence: None)
  Receive Date: 20120815
  Receipt Date: 20120814
  Transmission Date: 20120928
  Serious: Yes (Other)
  Sender: FDA-Public Use
  Company Number: AU-GLAXOSMITHKLINE-B0820413A

PATIENT
  Sex: Female

DRUGS (4)
  1. RALTITREXED [Suspect]
     Indication: PRODUCT USED FOR UNKNOWN INDICATION
     Route: 065
  2. XELODA [Suspect]
     Indication: BREAST CANCER METASTATIC
     Dosage: 2000MG PER DAY
     Route: 065
     Dates: start: 20120720, end: 20120723
  3. PHENERGAN HCL [Concomitant]
  4. TYKERB [Suspect]
     Indication: BREAST CANCER METASTATIC
     Dosage: 1000MG AT NIGHT
     Route: 065
     Dates: start: 20120720

REACTIONS (3)
  - ARTERIOSPASM CORONARY [None]
  - RASH PRURITIC [None]
  - FATIGUE [None]
